FAERS Safety Report 18528170 (Version 4)
Quarter: 2021Q1

REPORT INFORMATION
  Report Type: Report from Study
  Country: US (occurrence: US)
  Receive Date: 20201120
  Receipt Date: 20210105
  Transmission Date: 20210419
  Serious: Yes (Hospitalization, Other)
  Sender: FDA-Public Use
  Company Number: NVSC2020US303944

PATIENT
  Sex: Male

DRUGS (1)
  1. ENTRESTO [Suspect]
     Active Substance: SACUBITRIL\VALSARTAN
     Indication: PRODUCT USED FOR UNKNOWN INDICATION
     Dosage: UNK
     Route: 065
     Dates: start: 20201103

REACTIONS (7)
  - Cardiac flutter [Unknown]
  - Extrasystoles [Unknown]
  - Taste disorder [Unknown]
  - Feeling abnormal [Unknown]
  - Atrioventricular block complete [Unknown]
  - Throat clearing [Unknown]
  - Cough [Unknown]
